FAERS Safety Report 23458408 (Version 1)
Quarter: 2024Q1

REPORT INFORMATION
  Report Type: Spontaneous
  Country: US (occurrence: US)
  Receive Date: 20240130
  Receipt Date: 20240130
  Transmission Date: 20240410
  Serious: Yes (Other)
  Sender: FDA-Public Use
  Company Number: US-MYLANLABS-2024M1007501

PATIENT
  Sex: Female
  Weight: 49.9 kg

DRUGS (1)
  1. GABAPENTIN [Suspect]
     Active Substance: GABAPENTIN
     Indication: Pain
     Dosage: 300 MILLIGRAM, TID
     Route: 065

REACTIONS (14)
  - Barrett^s oesophagus [Unknown]
  - Eosinophilic oesophagitis [Unknown]
  - Fibromyalgia [Unknown]
  - Migraine [Unknown]
  - Dental discomfort [Unknown]
  - Pain in jaw [Unknown]
  - Muscle spasms [Unknown]
  - Dysphagia [Unknown]
  - Eustachian tube disorder [Unknown]
  - Sinus disorder [Unknown]
  - Myoclonus [Unknown]
  - Vertigo [Unknown]
  - Tinnitus [Unknown]
  - Off label use [Unknown]
